FAERS Safety Report 23530901 (Version 2)
Quarter: 2024Q1

REPORT INFORMATION
  Report Type: Spontaneous
  Country: JP (occurrence: JP)
  Receive Date: 20240216
  Receipt Date: 20240222
  Transmission Date: 20240410
  Serious: Yes (Death, Hospitalization)
  Sender: FDA-Public Use
  Company Number: JP-MYLANLABS-2024M1013131

PATIENT
  Age: 48 Year
  Sex: Female

DRUGS (8)
  1. DOBUTAMINE [Suspect]
     Active Substance: DOBUTAMINE HYDROCHLORIDE
     Indication: Haemodynamic instability
     Dosage: DOSE: 2.0Y
     Route: 065
  2. NOREPINEPHRINE [Suspect]
     Active Substance: NOREPINEPHRINE
     Indication: Haemodynamic instability
     Dosage: DOSE: 0.03Y AND 0.06Y
     Route: 065
  3. CARBOPLATIN [Concomitant]
     Active Substance: CARBOPLATIN
     Indication: Ovarian cancer metastatic
     Route: 065
  4. CARBOPLATIN [Concomitant]
     Active Substance: CARBOPLATIN
     Indication: Pulmonary tumour thrombotic microangiopathy
  5. DOCETAXEL [Concomitant]
     Active Substance: DOCETAXEL\DOCETAXEL ANHYDROUS
     Indication: Ovarian cancer metastatic
     Route: 065
  6. DOCETAXEL [Concomitant]
     Active Substance: DOCETAXEL\DOCETAXEL ANHYDROUS
     Indication: Pulmonary tumour thrombotic microangiopathy
  7. HEPARIN [Concomitant]
     Active Substance: HEPARIN SODIUM
     Indication: Anticoagulant therapy
     Route: 042
  8. MORPHINE [Concomitant]
     Active Substance: MORPHINE
     Indication: Product used for unknown indication
     Route: 065

REACTIONS (1)
  - Drug ineffective [Fatal]
